FAERS Safety Report 7474928-2 (Version None)
Quarter: 2011Q2

REPORT INFORMATION
  Report Type: 
  Country: None (occurrence: None)
  Receive Date: 20110512
  Receipt Date: 20091130
  Transmission Date: 20111010
  Serious: Yes (Death, Hospitalization, Other)
  Sender: FDA-Public Use
  Company Number: US-BAYER-200941230NA

PATIENT
  Age: 84 Year
  Sex: Female
  Weight: 61 kg

DRUGS (21)
  1. HEPARIN [Concomitant]
     Dosage: 500 UNITS
     Route: 042
     Dates: start: 20071101
  2. DOBUTAMINE HYDROCHLORIDE [Concomitant]
     Dosage: UNK
     Route: 042
     Dates: start: 20071101
  3. PRIMACOR [Concomitant]
     Dosage: UNK
     Route: 042
     Dates: start: 20071101
  4. VERSED [Concomitant]
     Dosage: 5 MG, UNK
     Route: 042
     Dates: start: 20071101
  5. HEPARIN [Concomitant]
     Dosage: 40,000 UNITS
     Route: 042
     Dates: start: 20071101
  6. DOPAMINE HCL [Concomitant]
     Dosage: TITRATE
     Route: 042
     Dates: start: 20071101
  7. ZOFRAN [Concomitant]
     Dosage: 4 MG, UNK
     Route: 042
     Dates: start: 20071101
  8. CLINDAMYCIN [Concomitant]
     Dosage: 600 MG, UNK
     Route: 042
     Dates: start: 20071101
  9. PROTAMINE SULFATE [Concomitant]
     Dosage: UNK
     Route: 042
     Dates: start: 20071101
  10. NOREPINEPHRINE BITARTRATE [Concomitant]
     Dosage: UNK
     Route: 042
     Dates: start: 20071101
  11. HEPARIN [Concomitant]
     Dosage: 5000 U, UNK
     Route: 042
     Dates: start: 20071101
  12. ATROPINE [Concomitant]
     Dosage: 1 MG, UNK
     Route: 042
     Dates: start: 20071101
  13. BUMEX [Concomitant]
     Dosage: 1 MG, UNK
     Route: 042
     Dates: start: 20071101
  14. OMNIPAQUE 140 [Concomitant]
     Indication: CATHETERISATION CARDIAC
     Dosage: 190 ML, UNK
     Dates: start: 20071101
  15. TRASYLOL [Suspect]
     Indication: CORONARY ARTERY BYPASS
     Dosage: 200 ML, UNK
     Route: 042
     Dates: start: 20071101
  16. INTEGRILIN [Concomitant]
     Dosage: 5.6ML FOLLOWED BY 5ML/HR INFUSION
     Route: 042
     Dates: start: 20071101
  17. EPINEPHRINE [Concomitant]
     Dosage: 1 MG, UNK
     Route: 042
     Dates: start: 20071101
  18. INSULIN HUMAN [Concomitant]
     Dosage: 90 U, UNK
     Route: 042
     Dates: start: 20071101
  19. ACETYLSALICYLIC ACID SRT [Concomitant]
     Dosage: 81 MG, UNK
     Route: 048
     Dates: start: 20071101
  20. PHENERGAN [Concomitant]
     Dosage: 25 MG, UNK
     Route: 042
     Dates: start: 20071101
  21. VANCOMYCIN [Concomitant]
     Dosage: 1 G, UNK
     Route: 042
     Dates: start: 20071101

REACTIONS (14)
  - ANXIETY [None]
  - DEATH [None]
  - RENAL FAILURE [None]
  - MULTI-ORGAN FAILURE [None]
  - FEAR [None]
  - INJURY [None]
  - RENAL IMPAIRMENT [None]
  - PAIN [None]
  - EMOTIONAL DISTRESS [None]
  - STRESS [None]
  - UNEVALUABLE EVENT [None]
  - RENAL INJURY [None]
  - CARDIO-RESPIRATORY ARREST [None]
  - ANHEDONIA [None]
